FAERS Safety Report 15347640 (Version 1)
Quarter: 2018Q3

REPORT INFORMATION
  Report Type: Spontaneous
  Country: RO (occurrence: RO)
  Receive Date: 20180904
  Receipt Date: 20180904
  Transmission Date: 20181010
  Serious: Yes (Hospitalization)
  Sender: FDA-Public Use
  Company Number: RO-PERRIGO-18RO008556

PATIENT

DRUGS (1)
  1. MIDAZOLAM HYDROCHLORIDE. [Suspect]
     Active Substance: MIDAZOLAM HYDROCHLORIDE
     Indication: ALLERGY TEST
     Dosage: 250 MCG/ML, SINGLE
     Route: 023

REACTIONS (1)
  - Anaphylactic reaction [Recovered/Resolved]
